FAERS Safety Report 10423287 (Version 1)
Quarter: 2014Q3

REPORT INFORMATION
  Report Type: Spontaneous
  Country: US (occurrence: None)
  Receive Date: 20140722
  Receipt Date: 20140722
  Transmission Date: 20150326
  Serious: No
  Sender: FDA-Public Use
  Company Number: 163-10004-14061682

PATIENT
  Age: 50 Year
  Sex: Female

DRUGS (6)
  1. SIMVASTATIN(SIMVASTATIN)(UNKNOWN) [Concomitant]
  2. OTEZLA [Suspect]
     Active Substance: APREMILAST
     Indication: PSORIATIC ARTHROPATHY
     Route: 048
     Dates: start: 20140605
  3. LEXAPRO(ESCITALOPRAM OXALATE) (UNKNOWN) [Concomitant]
  4. NAPROXEN(NAPROXEN)(UNKNOWN) [Concomitant]
  5. BENICAR(OLMESARTAN MEDOXOMIL)(UNKNOWN) [Concomitant]
  6. NEXIUM(ESOMEPRAZOLE)(UNKNOWN) [Concomitant]

REACTIONS (1)
  - Depression [None]

NARRATIVE: CASE EVENT DATE: 20140609
